FAERS Safety Report 7217755-3 (Version None)
Quarter: 2011Q1

REPORT INFORMATION
  Report Type: 
  Country: None (occurrence: None)
  Receive Date: 20110110
  Receipt Date: 20110103
  Transmission Date: 20110831
  Serious: Yes (Death, Hospitalization, Other)
  Sender: FDA-Public Use
  Company Number: US-ELI_LILLY_AND_COMPANY-US201101001131

PATIENT
  Age: 73 Year
  Sex: Male

DRUGS (5)
  1. HUMULIN N [Suspect]
     Indication: DIABETES MELLITUS
  2. CYMBALTA [Suspect]
     Indication: PHANTOM PAIN
  3. HUMULIN R [Suspect]
     Indication: DIABETES MELLITUS
  4. COREG [Concomitant]
  5. LASIX [Concomitant]

REACTIONS (16)
  - BREAST CANCER MALE [None]
  - WOUND SECRETION [None]
  - MALIGNANT MELANOMA [None]
  - PHANTOM PAIN [None]
  - HEPATIC FAILURE [None]
  - NEUROPATHY PERIPHERAL [None]
  - RENAL FAILURE [None]
  - FLUID RETENTION [None]
  - CHROMATURIA [None]
  - SKIN ULCER [None]
  - ABDOMINAL PAIN [None]
  - JAUNDICE [None]
  - INCONTINENCE [None]
  - OFF LABEL USE [None]
  - TOE AMPUTATION [None]
  - ABDOMINAL MASS [None]
